FAERS Safety Report 18673061 (Version 1)
Quarter: 2020Q4

REPORT INFORMATION
  Report Type: Spontaneous
  Country: IR (occurrence: IR)
  Receive Date: 20201229
  Receipt Date: 20201229
  Transmission Date: 20210114
  Serious: Yes (Hospitalization, Other)
  Sender: FDA-Public Use
  Company Number: IR-LUPIN PHARMACEUTICALS INC.-2020-10906

PATIENT
  Age: 24 Year
  Sex: Male

DRUGS (2)
  1. TRAMADOL HYDROCHLORIDE TABLET [Suspect]
     Active Substance: TRAMADOL HYDROCHLORIDE
     Indication: PRODUCT USED FOR UNKNOWN INDICATION
     Dosage: PART OF HERBAL SUPPLEMENT FERESHTEH TABLETS (100 TABLETS)
     Route: 065
  2. CYPROHEPTADINE. [Suspect]
     Active Substance: CYPROHEPTADINE
     Indication: PRODUCT USED FOR UNKNOWN INDICATION
     Dosage: PART OF HERBAL SUPPLEMENT FERESHTEH TABLETS (100 TABLETS)
     Route: 065

REACTIONS (4)
  - Liver injury [Recovering/Resolving]
  - Splenomegaly [Recovering/Resolving]
  - Generalised oedema [Recovering/Resolving]
  - Portal vein thrombosis [Recovering/Resolving]
